FAERS Safety Report 19180351 (Version 1)
Quarter: 2021Q2

REPORT INFORMATION
  Report Type: Spontaneous
  Country: US (occurrence: US)
  Receive Date: 20210424
  Receipt Date: 20210424
  Transmission Date: 20210717
  Serious: No
  Sender: FDA-Public Use
  Company Number: None

PATIENT
  Age: 64 Year
  Weight: 89 kg

DRUGS (1)
  1. DABIGATRAN (DABIGATRAN ETEXILATE 150 MG CAP, ORAL) [Suspect]
     Active Substance: DABIGATRAN ETEXILATE
     Indication: ATRIAL FIBRILLATION
     Route: 048
     Dates: start: 20210331, end: 20210419

REACTIONS (1)
  - Abdominal pain upper [None]
